FAERS Safety Report 11543613 (Version 3)
Quarter: 2015Q4

REPORT INFORMATION
  Report Type: Spontaneous
  Country: CH (occurrence: CH)
  Receive Date: 20150923
  Receipt Date: 20151002
  Transmission Date: 20160304
  Serious: Yes (Other)
  Sender: FDA-Public Use
  Company Number: CH-VIFOR (INTERNATIONAL) INC.-VIT-2015-02364

PATIENT
  Age: 70 Year
  Sex: Male
  Weight: 108 kg

DRUGS (7)
  1. PANTOPRAZOLE SODIUM SESQUIHYDRATE [Concomitant]
     Active Substance: PANTOPRAZOLE SODIUM
     Route: 048
     Dates: start: 20150302
  2. VELPHORO [Suspect]
     Active Substance: FERRIC OXYHYDROXIDE
     Indication: HYPERPHOSPHATAEMIA
     Route: 048
     Dates: start: 20150815, end: 20150815
  3. TORASEMID [Concomitant]
     Active Substance: TORSEMIDE
     Route: 048
     Dates: start: 20150807
  4. BENERVA [Concomitant]
     Active Substance: THIAMINE
     Route: 048
     Dates: start: 20150302
  5. GUTRON [Concomitant]
     Active Substance: MIDODRINE
     Route: 048
     Dates: start: 20150807
  6. ASS CARDIO [Concomitant]
     Route: 048
     Dates: start: 20150619
  7. CALCIUM ACETATE. [Concomitant]
     Active Substance: CALCIUM ACETATE
     Route: 048
     Dates: start: 20150629

REACTIONS (2)
  - Erythema [Recovered/Resolved]
  - Rash [Unknown]

NARRATIVE: CASE EVENT DATE: 2015
